FAERS Safety Report 16807173 (Version 2)
Quarter: 2019Q3

REPORT INFORMATION
  Report Type: Spontaneous
  Country: US (occurrence: US)
  Receive Date: 20190913
  Receipt Date: 20190920
  Transmission Date: 20191005
  Serious: No
  Sender: FDA-Public Use
  Company Number: US-TEVA-2019-US-1106313

PATIENT
  Age: 74 Year
  Sex: Male

DRUGS (2)
  1. TESTOSTERONE CYP INJ [Suspect]
     Active Substance: TESTOSTERONE CYPIONATE
     Indication: BLOOD TESTOSTERONE DECREASED
     Dosage: SINGLE DOSE VIAL
     Route: 065
     Dates: start: 2016, end: 2018
  2. TESTOSTERONE CYP INJ [Suspect]
     Active Substance: TESTOSTERONE CYPIONATE
     Dosage: MULTIPLE DOSE VIAL
     Route: 065
     Dates: start: 20190822

REACTIONS (8)
  - Blood testosterone abnormal [Unknown]
  - Product storage error [Unknown]
  - Depression [Not Recovered/Not Resolved]
  - Asthenia [Unknown]
  - Blood testosterone increased [Unknown]
  - Anxiety [Unknown]
  - Insomnia [Unknown]
  - Fatigue [Unknown]

NARRATIVE: CASE EVENT DATE: 2018
